FAERS Safety Report 19912299 (Version 1)
Quarter: 2021Q4

REPORT INFORMATION
  Report Type: Spontaneous
  Country: US (occurrence: US)
  Receive Date: 20211003
  Receipt Date: 20211003
  Transmission Date: 20220303
  Serious: Yes (unspecified)
  Sender: FDA-Public Use
  Company Number: None

PATIENT
  Age: 43 Year
  Sex: Male
  Weight: 72.9 kg

DRUGS (3)
  1. CIPROFLOXACIN [Suspect]
     Active Substance: CIPROFLOXACIN
     Indication: Urinary tract infection
     Dosage: QUANTITY:1 TABLET(S);
     Route: 048
     Dates: start: 20180629, end: 20180701
  2. AZO [Concomitant]
     Active Substance: PHENAZOPYRIDINE HYDROCHLORIDE
  3. NASID [Concomitant]

REACTIONS (6)
  - Dizziness [None]
  - Burning sensation [None]
  - Panic attack [None]
  - Palpitations [None]
  - Rash [None]
  - Tendon pain [None]

NARRATIVE: CASE EVENT DATE: 20180701
